FAERS Safety Report 7605147 (Version 5)
Quarter: 2013Q4

REPORT INFORMATION
  Report Type: Report from Study
  Country: DK (occurrence: DK)
  Receive Date: 20100924
  Receipt Date: 20131028
  Transmission Date: 20140711
  Serious: Yes (Hospitalization)
  Sender: FDA-Public Use
  Company Number: DK-JNJFOC-20100904871

PATIENT
  Age: 26 Year
  Sex: Female
  Weight: 61.5 kg

DRUGS (4)
  1. INFLIXIMAB, RECOMBINANT [Suspect]
     Indication: COLITIS ULCERATIVE
     Route: 042
     Dates: start: 20100519
  2. INFLIXIMAB, RECOMBINANT [Suspect]
     Indication: COLITIS ULCERATIVE
     Route: 042
     Dates: start: 20100628
  3. ASACOL [Concomitant]
     Indication: COLITIS ULCERATIVE
     Route: 048
  4. ORAL CONTRACEPTIVES [Concomitant]

REACTIONS (3)
  - Cough [Recovered/Resolved]
  - Musculoskeletal chest pain [Recovered/Resolved]
  - Nasopharyngitis [Recovered/Resolved]
